FAERS Safety Report 11131632 (Version 2)
Quarter: 2015Q2

REPORT INFORMATION
  Report Type: Spontaneous
  Country: BR (occurrence: BR)
  Receive Date: 20150522
  Receipt Date: 20150606
  Transmission Date: 20150821
  Serious: Yes (Other)
  Sender: FDA-Public Use
  Company Number: PHHY2015BR061732

PATIENT
  Age: 28 Year
  Sex: Female
  Weight: 92 kg

DRUGS (4)
  1. LEPONEX [Suspect]
     Active Substance: CLOZAPINE
     Dosage: (3/4 OF 100 MG TABLET), UNK
     Route: 048
     Dates: start: 20150420
  2. PINAZAN [Suspect]
     Active Substance: CLOZAPINE
     Indication: SCHIZOAFFECTIVE DISORDER
     Dosage: 3 DF, QD
     Route: 048
     Dates: start: 201504, end: 20150420
  3. LEPONEX [Suspect]
     Active Substance: CLOZAPINE
     Indication: SCHIZOAFFECTIVE DISORDER
     Dosage: 100-300MG, QD
     Route: 048
  4. LEPONEX [Suspect]
     Active Substance: CLOZAPINE
     Dosage: 3 DF (75MG), QHS
     Route: 048
     Dates: start: 2009, end: 201504

REACTIONS (5)
  - Psychotic disorder [Recovered/Resolved]
  - Somnolence [Recovering/Resolving]
  - Wrong technique in drug usage process [Unknown]
  - Aggression [Recovered/Resolved]
  - Drug ineffective [Recovering/Resolving]

NARRATIVE: CASE EVENT DATE: 201504
